FAERS Safety Report 11242819 (Version 2)
Quarter: 2015Q3

REPORT INFORMATION
  Report Type: Spontaneous
  Country: US (occurrence: None)
  Receive Date: 20150702
  Receipt Date: 20150714
  Transmission Date: 20151125
  Serious: Yes (Death, Hospitalization)
  Sender: FDA-Public Use
  Company Number: INS201506-000271

PATIENT
  Age: 56 Year
  Sex: Male

DRUGS (1)
  1. SUBSYS [Suspect]
     Active Substance: FENTANYL
     Dosage: 400 MCG, 30 UNITS
     Dates: start: 20150527

REACTIONS (1)
  - Death [None]

NARRATIVE: CASE EVENT DATE: 20150613
